FAERS Safety Report 18281686 (Version 1)
Quarter: 2020Q3

REPORT INFORMATION
  Report Type: Spontaneous
  Country: US (occurrence: US)
  Receive Date: 20200917
  Receipt Date: 20200917
  Transmission Date: 20201103
  Serious: Yes (Hospitalization, Other)
  Sender: FDA-Public Use
  Company Number: None

PATIENT
  Age: 67 Year
  Sex: Female
  Weight: 71 kg

DRUGS (17)
  1. ALBUTEROL MDI [Concomitant]
     Active Substance: ALBUTEROL
  2. DEXAMETHASONE. [Concomitant]
     Active Substance: DEXAMETHASONE
  3. LAMOTRIGINE. [Concomitant]
     Active Substance: LAMOTRIGINE
  4. CEFTRIAXONE. [Concomitant]
     Active Substance: CEFTRIAXONE
  5. IODIXANOL (VISIPAQUE) [Concomitant]
  6. VITAMIN C [Concomitant]
     Active Substance: ASCORBIC ACID
  7. GUAIFENESIN ER [Concomitant]
     Active Substance: GUAIFENESIN
  8. ONDANSETRON ODT [Concomitant]
     Active Substance: ONDANSETRON
  9. AZITHROMYCIN ANHYDROUS. [Concomitant]
     Active Substance: AZITHROMYCIN ANHYDROUS
  10. METOPROLOL SUCCINATE. [Concomitant]
     Active Substance: METOPROLOL SUCCINATE
  11. EXOXAPARIN [Concomitant]
  12. APAP [Concomitant]
     Active Substance: ACETAMINOPHEN
  13. REMDESIVIR 100MG/VIAL [Suspect]
     Active Substance: REMDESIVIR
     Indication: COVID-19
     Route: 042
     Dates: start: 20200829, end: 20200901
  14. REMDESIVIR 100MG/VIAL [Suspect]
     Active Substance: REMDESIVIR
     Indication: COVID-19
     Dosage: ROUTE: IV X 3 DOSES
     Route: 042
  15. CITALOPRAM [Concomitant]
     Active Substance: CITALOPRAM HYDROBROMIDE
  16. ZINC GLUCONATE [Concomitant]
     Active Substance: ZINC GLUCONATE
  17. LORAZEPAM. [Concomitant]
     Active Substance: LORAZEPAM

REACTIONS (1)
  - Alanine aminotransferase increased [None]

NARRATIVE: CASE EVENT DATE: 20200902
